FAERS Safety Report 8094173-X (Version None)
Quarter: 2012Q1

REPORT INFORMATION
  Report Type: 
  Country: None (occurrence: None)
  Receive Date: 20120130
  Receipt Date: 20120130
  Transmission Date: 20120608
  Serious: Yes (Life-Threatening)
  Sender: FDA-Public Use
  Company Number: None

PATIENT
  Sex: Female
  Weight: 63.502 kg

DRUGS (1)
  1. TOPAMAX [Suspect]
     Indication: MIGRAINE
     Dosage: 1 TABLET
     Route: 048
     Dates: start: 20090101, end: 20120128

REACTIONS (12)
  - ANXIETY [None]
  - SKIN ODOUR ABNORMAL [None]
  - WEIGHT INCREASED [None]
  - AGITATION [None]
  - INSOMNIA [None]
  - DRY MOUTH [None]
  - ABNORMAL BEHAVIOUR [None]
  - DEPRESSION [None]
  - PARAESTHESIA [None]
  - RESTLESSNESS [None]
  - DIARRHOEA [None]
  - SUICIDE ATTEMPT [None]
